FAERS Safety Report 4648662-8 (Version None)
Quarter: 2005Q2

REPORT INFORMATION
  Report Type: 
  Country: None (occurrence: None)
  Receive Date: 20050427
  Receipt Date: 20050413
  Transmission Date: 20051028
  Serious: Yes (Hospitalization, Other)
  Sender: FDA-Public Use
  Company Number: DE_050415676

PATIENT
  Age: 83 Year
  Sex: Female
  Weight: 60 kg

DRUGS (7)
  1. YENTREVE (DULOXETINE HYDROCHLORIDE) [Suspect]
     Indication: STRESS INCONTINENCE
     Dosage: 40 MG DAY
     Dates: start: 20050408, end: 20050408
  2. TEBONIN (GINKGO BILOBA EXTRACT) [Concomitant]
  3. GLUCOBAY [Concomitant]
  4. METFORMIN HCL [Concomitant]
  5. CALCIVIT D [Concomitant]
  6. OPTIVIT [Concomitant]
  7. FOSAMAX [Concomitant]

REACTIONS (11)
  - BLOOD POTASSIUM ABNORMAL [None]
  - BLOOD SODIUM ABNORMAL [None]
  - DIZZINESS [None]
  - FALL [None]
  - HAEMATOMA [None]
  - HEAD INJURY [None]
  - HYPERTENSIVE CRISIS [None]
  - HYPOTENSION [None]
  - LOSS OF CONSCIOUSNESS [None]
  - RETROGRADE AMNESIA [None]
  - SYNCOPE [None]
